FAERS Safety Report 14529130 (Version 2)
Quarter: 2018Q1

REPORT INFORMATION
  Report Type: Spontaneous
  Country: US (occurrence: US)
  Receive Date: 20180214
  Receipt Date: 20180304
  Transmission Date: 20180509
  Serious: No
  Sender: FDA-Public Use
  Company Number: US-JNJFOC-20180130889

PATIENT
  Age: 35 Year
  Sex: Male
  Weight: 102.06 kg

DRUGS (3)
  1. IMODIUM A-D [Suspect]
     Active Substance: LOPERAMIDE HYDROCHLORIDE
     Indication: DIARRHOEA
     Route: 048
     Dates: start: 20180123, end: 20180123
  2. IMODIUM A-D [Suspect]
     Active Substance: LOPERAMIDE HYDROCHLORIDE
     Route: 048
  3. VITAMIN D [Concomitant]
     Active Substance: CHOLECALCIFEROL
     Indication: NUTRITIONAL SUPPLEMENTATION
     Route: 065

REACTIONS (3)
  - Muscle spasms [Recovered/Resolved]
  - Diarrhoea [Recovering/Resolving]
  - Flatulence [Recovering/Resolving]

NARRATIVE: CASE EVENT DATE: 20180123
